FAERS Safety Report 5060056-2 (Version None)
Quarter: 2006Q3

REPORT INFORMATION
  Report Type: 
  Country: None (occurrence: None)
  Receive Date: 20060718
  Receipt Date: 20060703
  Transmission Date: 20061208
  Serious: Yes (Hospitalization)
  Sender: FDA-Public Use
  Company Number: 227316

PATIENT
  Age: 66 Year
  Sex: Male
  Weight: 76 kg

DRUGS (3)
  1. AVASTIN [Suspect]
     Indication: RECTAL CANCER
     Dosage: 390 MG, Q2W, INTRAVENOUS
     Route: 042
     Dates: start: 20050912, end: 20051102
  2. IRINOTECAN HCL [Concomitant]
  3. FLUOROURACIL [Concomitant]

REACTIONS (2)
  - ANAL ULCER [None]
  - C-REACTIVE PROTEIN INCREASED [None]
